FAERS Safety Report 18234385 (Version 2)
Quarter: 2020Q3

REPORT INFORMATION
  Report Type: Spontaneous
  Country: US (occurrence: US)
  Receive Date: 20200904
  Receipt Date: 20200904
  Transmission Date: 20201103
  Serious: No
  Sender: FDA-Public Use
  Company Number: US-KOWA-20US000770

PATIENT

DRUGS (1)
  1. LIVALO [Suspect]
     Active Substance: PITAVASTATIN CALCIUM
     Indication: LOW DENSITY LIPOPROTEIN
     Dosage: 2 MG, QD
     Dates: start: 2010

REACTIONS (3)
  - Muscular weakness [Unknown]
  - Myalgia [Unknown]
  - Limb discomfort [Unknown]
